FAERS Safety Report 9543437 (Version 1)
Quarter: 2013Q3

REPORT INFORMATION
  Report Type: Spontaneous
  Country: HR (occurrence: HR)
  Receive Date: 20130923
  Receipt Date: 20130923
  Transmission Date: 20140515
  Serious: Yes (Other)
  Sender: FDA-Public Use
  Company Number: HR-PFIZER INC-2013271785

PATIENT
  Age: 52 Year
  Sex: Female
  Weight: 87 kg

DRUGS (2)
  1. PREGABALIN [Suspect]
     Indication: NEURALGIA
     Dosage: 300 MG; 2X1
     Route: 048
     Dates: start: 20130809, end: 20130906
  2. OXYCONTIN [Suspect]
     Indication: NEURALGIA
     Dosage: 20 MG; 2X1
     Route: 048
     Dates: start: 20130809, end: 20130906

REACTIONS (6)
  - Micturition disorder [Recovered/Resolved]
  - Urinary retention [Recovered/Resolved]
  - Constipation [Recovered/Resolved]
  - Rash maculo-papular [Recovered/Resolved]
  - Swelling face [Recovered/Resolved]
  - Local swelling [Recovered/Resolved]
